FAERS Safety Report 15877830 (Version 2)
Quarter: 2019Q1

REPORT INFORMATION
  Report Type: Report from Study
  Country: US (occurrence: US)
  Receive Date: 20190128
  Receipt Date: 20190207
  Transmission Date: 20190417
  Serious: Yes (Hospitalization, Other)
  Sender: FDA-Public Use
  Company Number: US-GILEAD-2019-0386978

PATIENT
  Age: 17 Year
  Sex: Male

DRUGS (7)
  1. TYLENOL 8HR [Concomitant]
     Active Substance: ACETAMINOPHEN
  2. ASPIRIN (E.C.) [Concomitant]
     Active Substance: ASPIRIN
  3. TADALAFIL. [Concomitant]
     Active Substance: TADALAFIL
  4. AUGMENTIN BD [Concomitant]
     Active Substance: AMOXICILLIN\CLAVULANIC ACID
  5. AMBRISENTAN [Suspect]
     Active Substance: AMBRISENTAN
     Indication: PULMONARY ARTERIAL HYPERTENSION
     Dosage: 10 MG, QD
     Route: 048
     Dates: start: 20180404
  6. AMBRISENTAN [Suspect]
     Active Substance: AMBRISENTAN
     Indication: HEART DISEASE CONGENITAL
  7. TUMS [Concomitant]
     Active Substance: CALCIUM CARBONATE

REACTIONS (2)
  - Appendicitis perforated [Recovered/Resolved]
  - Off label use [Not Recovered/Not Resolved]

NARRATIVE: CASE EVENT DATE: 201808
